FAERS Safety Report 5205740-2 (Version None)
Quarter: 2007Q1

REPORT INFORMATION
  Report Type: 
  Country: None (occurrence: None)
  Receive Date: 20070111
  Receipt Date: 20070105
  Transmission Date: 20070707
  Serious: Yes (Hospitalization, Other)
  Sender: FDA-Public Use
  Company Number: 2006UW27199

PATIENT
  Age: 26285 Day
  Sex: Female
  Weight: 59.3 kg

DRUGS (1)
  1. IRESSA [Suspect]
     Indication: NON-SMALL CELL LUNG CANCER
     Route: 048
     Dates: start: 20061023, end: 20061119

REACTIONS (5)
  - DRY SKIN [None]
  - PNEUMONIA [None]
  - PNEUMOTHORAX [None]
  - RESPIRATORY DISTRESS [None]
  - RESPIRATORY FAILURE [None]
